FAERS Safety Report 10285138 (Version 1)
Quarter: 2014Q3

REPORT INFORMATION
  Report Type: Spontaneous
  Country: CZ (occurrence: CZ)
  Receive Date: 20140708
  Receipt Date: 20140708
  Transmission Date: 20150326
  Serious: Yes (Hospitalization)
  Sender: FDA-Public Use
  Company Number: CZ-ABBVIE-14P-217-1256695-00

PATIENT
  Age: 72 Year
  Sex: Female

DRUGS (8)
  1. CARBAMAZEPINE. [Suspect]
     Active Substance: CARBAMAZEPINE
     Indication: CONVULSION
     Route: 048
  2. PHENYTOIN. [Suspect]
     Active Substance: PHENYTOIN
     Route: 042
  3. PHENYTOIN. [Suspect]
     Active Substance: PHENYTOIN
     Indication: CONVULSION
     Dosage: ONCE
     Route: 040
  4. LEVOTHYROXINE [Concomitant]
     Active Substance: LEVOTHYROXINE
     Indication: PRODUCT USED FOR UNKNOWN INDICATION
  5. PHENYTOIN. [Suspect]
     Active Substance: PHENYTOIN
     Route: 042
  6. CARBAMAZEPINE. [Suspect]
     Active Substance: CARBAMAZEPINE
     Route: 048
  7. VALPROATE SODIUM. [Suspect]
     Active Substance: VALPROATE SODIUM
     Indication: CONVULSION
  8. PHENYTOIN. [Suspect]
     Active Substance: PHENYTOIN
     Route: 042

REACTIONS (5)
  - Hypothyroidism [Unknown]
  - Eyelid oedema [Unknown]
  - Constipation [Unknown]
  - Altered state of consciousness [Unknown]
  - Lethargy [Unknown]
